FAERS Safety Report 9997976 (Version 3)
Quarter: 2014Q2

REPORT INFORMATION
  Report Type: Spontaneous
  Country: IT (occurrence: IT)
  Receive Date: 20140311
  Receipt Date: 20140403
  Transmission Date: 20141212
  Serious: Yes (Hospitalization)
  Sender: FDA-Public Use
  Company Number: IT-ACTAVIS-2014-04146

PATIENT
  Age: 86 Year
  Sex: Female

DRUGS (6)
  1. GABAPENTIN (UNKNOWN) [Suspect]
     Indication: SEDATION
     Dosage: 900 MG, DAILY
     Route: 048
     Dates: start: 20140122, end: 20140124
  2. SEROQUEL [Suspect]
     Indication: SEDATION
     Dosage: 50 MG, DAILY
     Route: 048
     Dates: start: 20140122, end: 20140124
  3. TEGRETOL [Suspect]
     Indication: SEDATION
     Dosage: 800 MG, DAILY
     Route: 048
     Dates: start: 20140122, end: 20140124
  4. TEGRETOL [Suspect]
     Dosage: 200+300/DAILY
     Route: 048
  5. PLAVIX [Concomitant]
     Indication: ATRIAL FIBRILLATION
     Dosage: 75 MG, UNK
     Route: 048
  6. ACETYLSALICYLIC ACID [Concomitant]
     Indication: ATRIAL FIBRILLATION
     Dosage: 100 MG, UNK
     Route: 048

REACTIONS (4)
  - Altered state of consciousness [Recovering/Resolving]
  - Sopor [Recovering/Resolving]
  - Off label use [Recovering/Resolving]
  - Drug abuse [Recovering/Resolving]
